FAERS Safety Report 7705581-8 (Version None)
Quarter: 2011Q3

REPORT INFORMATION
  Report Type: 
  Country: None (occurrence: None)
  Receive Date: 20110823
  Receipt Date: 20110823
  Transmission Date: 20111222
  Serious: Yes (Death, Hospitalization)
  Sender: FDA-Public Use
  Company Number: None

PATIENT
  Sex: Male
  Weight: 100.6985 kg

DRUGS (5)
  1. PROTONIX [Concomitant]
  2. ASACOL [Concomitant]
  3. TASIGNA [Suspect]
     Indication: GASTROINTESTINAL STROMAL TUMOUR
     Dosage: 400MG BID DAILY PO
     Route: 048
     Dates: start: 20110505, end: 20110629
  4. TYLENOL-500 [Concomitant]
  5. GLEEVEC [Suspect]
     Indication: GASTROINTESTINAL STROMAL TUMOUR
     Dosage: 400MG QD DAILY PO
     Route: 048
     Dates: start: 20110505, end: 20110629

REACTIONS (8)
  - DRUG RESISTANCE [None]
  - ILEUS [None]
  - PYREXIA [None]
  - HAEMOGLOBIN DECREASED [None]
  - NEOPLASM PROGRESSION [None]
  - GASTROINTESTINAL STROMAL TUMOUR [None]
  - METASTASES TO LIVER [None]
  - SMALL INTESTINAL OBSTRUCTION [None]
